FAERS Safety Report 25311461 (Version 1)
Quarter: 2025Q2

REPORT INFORMATION
  Report Type: Spontaneous
  Country: US (occurrence: US)
  Receive Date: 20250514
  Receipt Date: 20250514
  Transmission Date: 20250716
  Serious: No
  Sender: Unknown Manufacturer
  Company Number: US-862174955-ML2025-02112

PATIENT
  Age: 86 Year
  Sex: Female
  Weight: 51 kg

DRUGS (4)
  1. KETOROLAC TROMETHAMINE [Suspect]
     Active Substance: KETOROLAC TROMETHAMINE
     Indication: Inflammation
     Route: 047
     Dates: start: 2023
  2. BRIMONIDINE TARTRATE [Suspect]
     Active Substance: BRIMONIDINE TARTRATE
     Indication: Ocular hypertension
  3. LATANOPROST [Suspect]
     Active Substance: LATANOPROST
     Indication: Ocular hypertension
  4. DORZOLAMIDE [Suspect]
     Active Substance: DORZOLAMIDE
     Indication: Ocular hypertension

REACTIONS (4)
  - Arthritis [Unknown]
  - Visual impairment [Unknown]
  - Intraocular pressure increased [Unknown]
  - Headache [Not Recovered/Not Resolved]

NARRATIVE: CASE EVENT DATE: 20240101
